FAERS Safety Report 21010984 (Version 2)
Quarter: 2022Q2

REPORT INFORMATION
  Report Type: Spontaneous
  Country: US (occurrence: US)
  Receive Date: 20220627
  Receipt Date: 20220629
  Transmission Date: 20220720
  Serious: No
  Sender: FDA-Public Use
  Company Number: US-PFIZER INC-202200889690

PATIENT
  Age: 60 Year
  Sex: Male
  Weight: 66.22 kg

DRUGS (5)
  1. PAXLOVID [Suspect]
     Active Substance: NIRMATRELVIR\RITONAVIR
     Indication: COVID-19 treatment
     Dosage: 3 DF, 2X/DAY (3 TABLETS IN MORNING AND 3 TABLETS IN EVENING FOR 5 DAYS)
     Dates: start: 20220621
  2. TRAMADOL [Concomitant]
     Active Substance: TRAMADOL
     Indication: Arthritis
     Dosage: 50 MG, 2X/DAY (ONE TABLET BY MOUTH TWICE DAILY)
     Route: 048
  3. GABAPENTIN [Concomitant]
     Active Substance: GABAPENTIN
     Indication: Nerve injury
     Dosage: 300 MG, DAILY (TAKE ONE CAPSULE BY MOUTH ONCE DAILY AT NIGHT)
     Route: 048
  4. TYLENOL EXTRA STRENGTH [Concomitant]
     Active Substance: ACETAMINOPHEN
     Indication: Arthritis
     Dosage: 800 MG, 3X/DAY (TAKES TWO, 400MG EACH, EVERY EIGHT HOURS)
  5. JEVITY [ASCORBIC ACID;BIOTIN;CALCIUM CASEINATE;CALCIUM PANTOTHENATE;CA [Concomitant]
     Indication: Nutritional supplementation
     Dosage: 1.5 UNK

REACTIONS (3)
  - Intentional product misuse [Unknown]
  - Wrong technique in product usage process [Unknown]
  - Gastric disorder [Not Recovered/Not Resolved]

NARRATIVE: CASE EVENT DATE: 20220621
